FAERS Safety Report 7991853-9 (Version None)
Quarter: 2011Q4

REPORT INFORMATION
  Report Type: 
  Country: None (occurrence: None)
  Receive Date: 20111219
  Receipt Date: 20111214
  Transmission Date: 20120403
  Serious: No
  Sender: FDA-Public Use
  Company Number: US-PFIZER INC-2011305476

PATIENT
  Sex: Female

DRUGS (2)
  1. ZITHROMAX [Suspect]
     Dosage: UNK
  2. BIAXIN [Suspect]

REACTIONS (2)
  - SWOLLEN TONGUE [None]
  - DRUG INEFFECTIVE [None]
